FAERS Safety Report 9648122 (Version 3)
Quarter: 2013Q4

REPORT INFORMATION
  Report Type: Report from Study
  Country: US (occurrence: US)
  Receive Date: 20131028
  Receipt Date: 20131104
  Transmission Date: 20140711
  Serious: Yes (Other)
  Sender: FDA-Public Use
  Company Number: PHEH2013US018951

PATIENT
  Sex: Male

DRUGS (2)
  1. GLEEVEC [Suspect]
     Indication: CHRONIC MYELOID LEUKAEMIA
     Dosage: 400 MG, QD
     Route: 048
  2. GLEEVEC [Suspect]
     Dosage: 400 MG, QD
     Route: 048

REACTIONS (4)
  - Gastrointestinal stoma complication [Unknown]
  - Colostomy infection [Unknown]
  - Full blood count increased [Unknown]
  - Malaise [Unknown]
